FAERS Safety Report 15238590 (Version 1)
Quarter: 2018Q4

REPORT INFORMATION
  Report Type: Spontaneous
  Country: GB (occurrence: GB)
  Receive Date: 20180803
  Receipt Date: 20180803
  Transmission Date: 20190204
  Serious: Yes (Other)
  Sender: FDA-Public Use
  Company Number: GB-SA-2018SA139305

PATIENT
  Age: 63 Year
  Sex: Female

DRUGS (8)
  1. GAVISCON [Suspect]
     Active Substance: ALUMINUM HYDROXIDE\MAGNESIUM CARBONATE
     Dosage: UNK
     Dates: end: 20180501
  2. VENTOLINE [SALBUTAMOL] [Suspect]
     Active Substance: ALBUTEROL SULFATE
     Indication: ASTHMA
     Dosage: UNK
     Dates: end: 20180501
  3. BUSCOPAN 10 MG [Suspect]
     Active Substance: BUTYLSCOPOLAMINE BROMIDE
     Dosage: 10 MG, Q4D
     Route: 048
     Dates: end: 20180501
  4. COCODAMOL [Suspect]
     Active Substance: ACETAMINOPHEN\CODEINE PHOSPHATE
     Indication: RHEUMATOID ARTHRITIS
  5. METFORMIN [Suspect]
     Active Substance: METFORMIN HYDROCHLORIDE
     Dosage: 500 MG, BID
     Route: 048
     Dates: end: 20180501
  6. COCODAMOL [Suspect]
     Active Substance: ACETAMINOPHEN\CODEINE PHOSPHATE
     Indication: SCIATICA
     Dosage: 30 MG, QD
     Route: 048
     Dates: end: 20180501
  7. SERETIDE [Suspect]
     Active Substance: FLUTICASONE PROPIONATE\SALMETEROL XINAFOATE
     Dosage: UNK
     Dates: end: 20180501
  8. AMLODIPINE [Suspect]
     Active Substance: AMLODIPINE BESYLATE
     Indication: BLOOD PRESSURE MEASUREMENT
     Dosage: 10 MG, QD
     Route: 048
     Dates: end: 20180501

REACTIONS (20)
  - Lip swelling [Recovering/Resolving]
  - Hypertension [Recovering/Resolving]
  - Headache [Recovering/Resolving]
  - Swelling [Recovering/Resolving]
  - Swelling face [Recovering/Resolving]
  - Renal impairment [Recovering/Resolving]
  - Tremor [Recovering/Resolving]
  - Back pain [Recovering/Resolving]
  - Dyspnoea [Recovering/Resolving]
  - Asthma [Recovering/Resolving]
  - Liver injury [Recovering/Resolving]
  - Dysarthria [Recovering/Resolving]
  - Confusional state [Recovering/Resolving]
  - Vision blurred [Recovering/Resolving]
  - Blister [Recovering/Resolving]
  - Constipation [Recovering/Resolving]
  - Rash [Recovering/Resolving]
  - Fatigue [Recovering/Resolving]
  - Pruritus [Recovering/Resolving]
  - Hallucination [Recovering/Resolving]
